FAERS Safety Report 8521319-9 (Version None)
Quarter: 2012Q3

REPORT INFORMATION
  Report Type: 
  Country: None (occurrence: None)
  Receive Date: 20120719
  Receipt Date: 20120706
  Transmission Date: 20120928
  Serious: Yes (Death, Hospitalization)
  Sender: FDA-Public Use
  Company Number: FR-MSD-2011SP030888

PATIENT

DRUGS (7)
  1. ELTROMBOPAG OLAMINE [Concomitant]
     Indication: THROMBOCYTOPENIA
     Dosage: REVOLADE
     Route: 048
     Dates: start: 20110611
  2. NEORECORMON [Concomitant]
     Indication: ANAEMIA
     Dosage: 30000 IU, QW
     Route: 058
     Dates: start: 20110530
  3. BOCEPREVIR [Suspect]
     Indication: HEPATITIS C
     Dosage: 800 MG, TID
     Route: 048
     Dates: start: 20110517, end: 20110627
  4. MK-8908 [Suspect]
     Indication: HEPATITIS C
     Dosage: 1000 MG, QD
     Route: 048
     Dates: start: 20110404
  5. LEVOTHYROXINE SODIUM [Concomitant]
     Indication: THYROID DISORDER
     Dosage: 62.5 A?G, QD
     Route: 048
  6. VIRAFERONPEG [Suspect]
     Indication: HEPATITIS C
     Dosage: 1.5 A?G/KG, QW
     Route: 058
     Dates: start: 20110404, end: 20110627
  7. LASIX [Concomitant]
     Indication: OEDEMA PERIPHERAL
     Dosage: 40 MG, QD
     Route: 048
     Dates: start: 20110530

REACTIONS (1)
  - ANAEMIA [None]
